FAERS Safety Report 15561660 (Version 3)
Quarter: 2019Q2

REPORT INFORMATION
  Report Type: Report from Study
  Country: JP (occurrence: JP)
  Receive Date: 20181029
  Receipt Date: 20190612
  Transmission Date: 20190711
  Serious: Yes (Other)
  Sender: FDA-Public Use
  Company Number: JP-GLAXOSMITHKLINE-JP2018JPN174444

PATIENT
  Age: 35 Year
  Sex: Female
  Weight: 60 kg

DRUGS (25)
  1. ASPARA POTASSIUM [Concomitant]
     Active Substance: POTASSIUM ASPARTATE
     Dosage: UNK
  2. XYZAL [Suspect]
     Active Substance: LEVOCETIRIZINE DIHYDROCHLORIDE
     Indication: ASTHMA PROPHYLAXIS
     Dosage: UNK UNK, 1D
     Route: 048
  3. PREDONINE [Concomitant]
     Active Substance: PREDNISOLONE
     Indication: SYSTEMIC LUPUS ERYTHEMATOSUS
     Dosage: 10 MG, 1D
     Dates: start: 20180912, end: 20180929
  4. PREDONINE [Concomitant]
     Active Substance: PREDNISOLONE
     Dosage: 3 MG, 1D
     Dates: start: 20181105, end: 20181202
  5. TAKECAB [Concomitant]
     Active Substance: VONOPRAZAN FUMURATE
     Indication: GASTROOESOPHAGEAL REFLUX PROPHYLAXIS
  6. NEXIUM CAPSULE [Concomitant]
     Indication: GASTROOESOPHAGEAL REFLUX DISEASE
     Dosage: UNK
  7. URSO [Concomitant]
     Active Substance: URSODIOL
     Indication: ANTIVIRAL PROPHYLAXIS
     Dosage: UNK
  8. BELIMUMAB SUBCUTANEOUS [Suspect]
     Active Substance: BELIMUMAB
     Dosage: 200 MG, WE
     Route: 058
     Dates: start: 20190129, end: 20190218
  9. MEPTIN AIR [Suspect]
     Active Substance: PROCATEROL HYDROCHLORIDE
     Indication: ASTHMA PROPHYLAXIS
     Dosage: UNK ?G, UNK
     Route: 055
  10. PREDONINE [Concomitant]
     Active Substance: PREDNISOLONE
     Dosage: 2 MG, 1D
     Dates: start: 20181203, end: 20190128
  11. ALFACALCIDOL [Concomitant]
     Active Substance: ALFACALCIDOL
     Dosage: 1 UNK, UNK
  12. AMBROXOL HYDROCHLORIDE [Concomitant]
     Active Substance: AMBROXOL HYDROCHLORIDE
     Indication: ASTHMA PROPHYLAXIS
     Dosage: UNK
  13. BELIMUMAB SUBCUTANEOUS [Suspect]
     Active Substance: BELIMUMAB
     Dosage: UNK UNK, WE
     Route: 058
     Dates: start: 20181120, end: 20181120
  14. HIRUDOID LOTION [Concomitant]
     Indication: DRY SKIN PROPHYLAXIS
     Dosage: UNK
  15. BELIMUMAB SUBCUTANEOUS [Suspect]
     Active Substance: BELIMUMAB
     Dosage: 200 MG, WE
     Route: 058
     Dates: start: 20180912, end: 20180918
  16. BELIMUMAB SUBCUTANEOUS [Suspect]
     Active Substance: BELIMUMAB
     Indication: SYSTEMIC LUPUS ERYTHEMATOSUS
     Dosage: 200 MG, WE
     Route: 058
     Dates: start: 20181002, end: 20181120
  17. FLUTIFORM AEROSOL [Suspect]
     Active Substance: FLUTICASONE PROPIONATE\FORMOTEROL FUMARATE
     Indication: ASTHMA PROPHYLAXIS
     Dosage: UNK ?G, UNK
     Route: 055
  18. AIMIX COMBINATION TABLET [Concomitant]
     Dosage: UNK UNK, 1D
  19. MUCODYNE [Concomitant]
     Active Substance: CARBOCYSTEINE
     Indication: ASTHMA PROPHYLAXIS
     Dosage: UNK
  20. BELIMUMAB SUBCUTANEOUS [Suspect]
     Active Substance: BELIMUMAB
     Indication: SYSTEMIC LUPUS ERYTHEMATOSUS
     Dosage: UNK UNK, WE
     Route: 058
     Dates: start: 20180904
  21. PREDONINE [Concomitant]
     Active Substance: PREDNISOLONE
     Dosage: 5 MG, 1D
     Dates: start: 20180930, end: 20181104
  22. PREDONINE [Concomitant]
     Active Substance: PREDNISOLONE
     Dosage: 1 MG, 1D
     Dates: start: 20190129
  23. KIPRES [Concomitant]
     Active Substance: MONTELUKAST SODIUM
     Indication: ASTHMA PROPHYLAXIS
     Dosage: UNK
  24. ONETRAM [Concomitant]
     Active Substance: TRAMADOL HYDROCHLORIDE
     Indication: SYSTEMIC LUPUS ERYTHEMATOSUS
     Dosage: UNK
  25. VITANEURIN [Concomitant]
     Indication: PROPHYLAXIS
     Dosage: UNK

REACTIONS (8)
  - Pharyngeal oedema [Recovered/Resolved]
  - Upper respiratory tract inflammation [Recovered/Resolved]
  - Pharyngeal stenosis [Recovered/Resolved]
  - Pharyngitis [Unknown]
  - Asthma [Recovered/Resolved]
  - Nasal oedema [Recovered/Resolved]
  - Asthma [Recovered/Resolved]
  - Viral pharyngitis [Recovered/Resolved]

NARRATIVE: CASE EVENT DATE: 20180918
